FAERS Safety Report 21329412 (Version 1)
Quarter: 2022Q3

REPORT INFORMATION
  Report Type: Report from Study
  Country: IT (occurrence: IT)
  Receive Date: 20220913
  Receipt Date: 20220913
  Transmission Date: 20221027
  Serious: Yes (Other)
  Sender: FDA-Public Use
  Company Number: None

PATIENT
  Age: 83 Year
  Sex: Female

DRUGS (12)
  1. QUETIAPINE [Suspect]
     Active Substance: QUETIAPINE
     Indication: Cognitive disorder
     Dates: start: 20220314, end: 20220315
  2. ALPRAZOLAM [Concomitant]
     Active Substance: ALPRAZOLAM
  3. AMLODIPINE [Concomitant]
     Active Substance: AMLODIPINE BESYLATE
  4. ATORVASTATIN [Concomitant]
     Active Substance: ATORVASTATIN
  5. BISOPROLOL [Concomitant]
     Active Substance: BISOPROLOL
  6. ASPIRIN [Concomitant]
     Active Substance: ASPIRIN
  7. FUROSEMIDE [Concomitant]
     Active Substance: FUROSEMIDE
  8. LACOSAMIDE [Concomitant]
     Active Substance: LACOSAMIDE
     Dosage: DOSAGE INCREASED FROM 150 MG / DAY TO 200 MG / DAY (100 MG / BID)
  9. LEVOSULPIRIDE [Concomitant]
     Active Substance: LEVOSULPIRIDE
  10. PLAVIX [Concomitant]
     Active Substance: CLOPIDOGREL BISULFATE
  11. RABEPRAZOLE [Concomitant]
     Active Substance: RABEPRAZOLE
  12. SERTRALINE [Concomitant]
     Active Substance: SERTRALINE HYDROCHLORIDE

REACTIONS (2)
  - Presyncope [Recovered/Resolved]
  - Epilepsy [Recovered/Resolved]

NARRATIVE: CASE EVENT DATE: 20220315
